FAERS Safety Report 8318630-3 (Version None)
Quarter: 2012Q2

REPORT INFORMATION
  Report Type: 
  Country: None (occurrence: None)
  Receive Date: 20120426
  Receipt Date: 20120426
  Transmission Date: 20120825
  Serious: Yes (Hospitalization)
  Sender: FDA-Public Use
  Company Number: None

PATIENT
  Age: 57 Year
  Sex: Male

DRUGS (3)
  1. ERLOTINIB HYDROCHLORIDE [Suspect]
     Indication: RESPIRATORY PAPILLOMA
     Dosage: 50MG 1 QD
  2. POLYPHENON [Suspect]
     Indication: RESPIRATORY PAPILLOMA
     Dosage: 200MG 1 TID
  3. LISINOPRIL AND HYDROCHLOROTHIAZIDE [Concomitant]

REACTIONS (1)
  - LARYNGEAL PAPILLOMA [None]
